FAERS Safety Report 5326620-8 (Version None)
Quarter: 2007Q2

REPORT INFORMATION
  Report Type: 
  Country: None (occurrence: None)
  Receive Date: 20070516
  Receipt Date: 20070504
  Transmission Date: 20071010
  Serious: Yes (Other)
  Sender: FDA-Public Use
  Company Number: US-PFIZER INC-2006041109

PATIENT
  Sex: Male
  Weight: 83.5 kg

DRUGS (9)
  1. VIAGRA [Suspect]
     Indication: ERECTILE DYSFUNCTION
     Dates: start: 20000510, end: 20040630
  2. TENEX [Concomitant]
  3. LISINOPRIL [Concomitant]
  4. ZESTORETIC [Concomitant]
     Dates: start: 20010328
  5. VALSARTAN [Concomitant]
     Dates: start: 20020301
  6. ZOCOR [Concomitant]
     Dates: start: 20020510
  7. FLONASE [Concomitant]
     Dates: start: 20020301
  8. ALLEGRA [Concomitant]
     Dates: start: 20020301
  9. TRAZODONE HCL [Concomitant]
     Dates: start: 19960101

REACTIONS (1)
  - OPTIC ISCHAEMIC NEUROPATHY [None]
